FAERS Safety Report 23903698 (Version 1)
Quarter: 2024Q2

REPORT INFORMATION
  Report Type: Report from Study
  Country: US (occurrence: US)
  Receive Date: 20240527
  Receipt Date: 20240527
  Transmission Date: 20240715
  Serious: Yes (Other)
  Sender: FDA-Public Use
  Company Number: US-CARNEGIE-000011

PATIENT
  Age: 66 Year

DRUGS (2)
  1. LETROZOLE [Suspect]
     Active Substance: LETROZOLE
     Indication: Endometrial cancer recurrent
     Dosage: 28 DAYS AFTER INITIATING THERAPY WITH LETROZOLE, ABEMACICLIB AND LY3023414, THE PATIENT DISCONTINUE
     Route: 048
  2. ABEMACICLIB [Suspect]
     Active Substance: ABEMACICLIB
     Indication: Endometrial cancer recurrent
     Route: 048

REACTIONS (1)
  - Malignant neoplasm progression [Unknown]
